FAERS Safety Report 6495087-9 (Version None)
Quarter: 2009Q4

REPORT INFORMATION
  Report Type: 
  Country: None (occurrence: None)
  Receive Date: 20091214
  Receipt Date: 20090511
  Transmission Date: 20100525
  Serious: Yes (Hospitalization)
  Sender: FDA-Public Use
  Company Number: US-BRISTOL-MYERS SQUIBB COMPANY-14605968

PATIENT
  Age: 20 Year
  Sex: Male

DRUGS (1)
  1. ABILIFY [Suspect]
     Indication: DEPRESSION
     Dosage: STARTED TAKING ARIPIPRAZOLE 5 WEEKS AGO
     Dates: start: 20090101, end: 20090101

REACTIONS (1)
  - RHABDOMYOLYSIS [None]
